FAERS Safety Report 7608101-1 (Version None)
Quarter: 2011Q3

REPORT INFORMATION
  Report Type: 
  Country: None (occurrence: None)
  Receive Date: 20110712
  Receipt Date: 20110425
  Transmission Date: 20111222
  Serious: No
  Sender: FDA-Public Use
  Company Number: 277669USA

PATIENT
  Age: 21 Year
  Sex: Female
  Weight: 52.1637 kg

DRUGS (3)
  1. MIFEPRISTONE (MIFEPREX) [Suspect]
     Indication: ABORTION INDUCED
     Dates: start: 20110416, end: 20110416
  2. PLAN B ONE-STEP [Suspect]
     Indication: ABORTION INDUCED
     Dosage: 1.5 MG (1.5 MG, 1 IN 1 D), ORAL, 1.5 MG (1.5 MG, 1 IN 1 D), ORAL
     Route: 048
     Dates: start: 20110418, end: 20110418
  3. PLAN B ONE-STEP [Suspect]
     Indication: ABORTION INDUCED
     Dosage: 1.5 MG (1.5 MG, 1 IN 1 D), ORAL, 1.5 MG (1.5 MG, 1 IN 1 D), ORAL
     Route: 048
     Dates: start: 20110418, end: 20110418

REACTIONS (8)
  - MATERNAL EXPOSURE DURING PREGNANCY [None]
  - PELVIC PAIN [None]
  - MENSTRUATION IRREGULAR [None]
  - PAIN [None]
  - ABDOMINAL PAIN [None]
  - HAEMORRHAGE [None]
  - LETHARGY [None]
  - VOMITING [None]
